FAERS Safety Report 7522642-7 (Version None)
Quarter: 2011Q2

REPORT INFORMATION
  Report Type: 
  Country: None (occurrence: None)
  Receive Date: 20110603
  Receipt Date: 20110517
  Transmission Date: 20111010
  Serious: No
  Sender: FDA-Public Use
  Company Number: US-MYLANLABS-2011S1010296

PATIENT
  Sex: Male

DRUGS (1)
  1. ROCURONIUM BROMIDE [Suspect]
     Indication: SEDATION
     Route: 042
     Dates: start: 20110512, end: 20110512

REACTIONS (2)
  - DRUG EFFECT DECREASED [None]
  - SEDATIVE THERAPY [None]
